FAERS Safety Report 13715260 (Version 1)
Quarter: 2020Q3

REPORT INFORMATION
  Report Type: Report from Study
  Country: IT (occurrence: IT)
  Receive Date: 20170704
  Receipt Date: 20170704
  Transmission Date: 20201105
  Serious: Yes (Other)
  Sender: FDA-Public Use
  Company Number: IT-JNJFOC-20170605339

PATIENT
  Age: 68 Year
  Sex: Female
  Weight: 63 kg

DRUGS (14)
  1. SUCABITRIL VALSARTAN SODIUM HYDRATE [Concomitant]
     Active Substance: SACUBITRIL\VALSARTAN
     Route: 065
     Dates: start: 20170422
  2. METFORMIN [Concomitant]
     Active Substance: METFORMIN HYDROCHLORIDE
     Dosage: AC (BEFORE MEALS)
     Route: 065
     Dates: start: 19970201
  3. PLACEBO [Suspect]
     Active Substance: UNSPECIFIED INGREDIENT
     Indication: CORONARY ARTERY DISEASE
     Route: 048
     Dates: start: 20170526, end: 20170529
  4. ATORVASTATINA [Concomitant]
     Active Substance: ATORVASTATIN
     Route: 065
     Dates: start: 20120101
  5. OMEGA III [Concomitant]
     Dosage: 1 TABLET AT 8 AM, 1 AT 12 AM, 1 AT 8 PM (TOOK FROM 2012)
     Route: 065
     Dates: start: 20120101
  6. LEVOTIROXINA (LEVOTHYROXINE SODIUM) [Concomitant]
     Active Substance: LEVOTHYROXINE SODIUM
     Dosage: 1 TABLET AT 8:00 AM (TOOK FROM 2000)
     Route: 065
     Dates: start: 20000101
  7. FUROSEMIDE. [Concomitant]
     Active Substance: FUROSEMIDE
     Dosage: TWICE IN THE MORNING (2 TABLETS AT 8:00 AM (TOOK FROM 2012)
     Route: 065
     Dates: start: 20120101
  8. BISOPROLOL [Concomitant]
     Active Substance: BISOPROLOL
     Dosage: 1 TABLET AT 8:00 AM AND 1 TABLET AT 8:00 PM (TOOK SINCE 2012)
     Route: 065
     Dates: start: 20120101
  9. IVABRADINE [Concomitant]
     Active Substance: IVABRADINE
     Dosage: 1/2 TABLET AT 8:00 AM AND 1/2 TABLET AT 8:00 PM (TOOK SINCE 2012
     Route: 065
     Dates: start: 20120101
  10. PLACEBO [Suspect]
     Active Substance: UNSPECIFIED INGREDIENT
     Indication: CARDIAC FAILURE CHRONIC
     Route: 048
     Dates: start: 20170526, end: 20170529
  11. FEBUXOSTAT. [Concomitant]
     Active Substance: FEBUXOSTAT
     Dosage: 1 TABLET AT 4 PM (TOOK FROM 2015)
     Route: 065
     Dates: start: 20150101
  12. FUROSEMIDE W/SPIRONOLACTONE [Concomitant]
     Active Substance: FUROSEMIDE\SPIRONOLACTONE
     Dosage: 25/37 MG: 1 TABLET AT 4:00 PM (TOOK FROM MAY 2017)
     Route: 065
     Dates: start: 20170501
  13. PANTOPRAZOLE [Concomitant]
     Active Substance: PANTOPRAZOLE
     Dosage: 1 TABLET AT 8:00 AM (TOOK FROM 2000)
     Route: 065
     Dates: start: 20000101
  14. ACIDO ACETIL SALICILICO [Concomitant]
     Active Substance: ASPIRIN
     Route: 065
     Dates: start: 20000101

REACTIONS (1)
  - Toxic epidermal necrolysis [Recovered/Resolved]

NARRATIVE: CASE EVENT DATE: 20170529
